FAERS Safety Report 9184831 (Version 1)
Quarter: 2013Q1

REPORT INFORMATION
  Report Type: Spontaneous
  Country: US (occurrence: US)
  Receive Date: 20130325
  Receipt Date: 20130325
  Transmission Date: 20140127
  Serious: Yes (Hospitalization)
  Sender: FDA-Public Use
  Company Number: US-BRISTOL-MYERS SQUIBB COMPANY-16488140

PATIENT
  Age: 64 Year
  Sex: Male

DRUGS (5)
  1. ERBITUX SOLN FOR INF [Suspect]
     Indication: HEAD AND NECK CANCER
     Route: 042
     Dates: start: 20120326, end: 20120326
  2. ZOFRAN [Concomitant]
  3. DECADRON [Concomitant]
  4. BENADRYL [Concomitant]
  5. ZANTAC [Concomitant]

REACTIONS (4)
  - Loss of consciousness [Recovered/Resolved]
  - Dyspnoea [Recovered/Resolved]
  - Respiratory distress [Unknown]
  - Hypotension [Unknown]
